FAERS Safety Report 13667484 (Version 1)
Quarter: 2017Q2

REPORT INFORMATION
  Report Type: Other
  Country: JP (occurrence: JP)
  Receive Date: 20170620
  Receipt Date: 20170620
  Transmission Date: 20170830
  Serious: Yes (Hospitalization)
  Sender: FDA-Public Use
  Company Number: JP-ACTELION-A-CH2017-155182

PATIENT
  Age: 32 Year
  Sex: Female

DRUGS (4)
  1. BOSENTAN. [Suspect]
     Active Substance: BOSENTAN
     Indication: PULMONARY ARTERIAL HYPERTENSION
     Dosage: 250 MG, QD
     Route: 048
  2. SILDENAFIL. [Concomitant]
     Active Substance: SILDENAFIL
     Dosage: 60 MG, QD
  3. BOSENTAN. [Suspect]
     Active Substance: BOSENTAN
     Dosage: 250 MG, QD
     Route: 048
  4. FLOLAN [Suspect]
     Active Substance: EPOPROSTENOL SODIUM
     Indication: PULMONARY ARTERIAL HYPERTENSION
     Dosage: 50 NG/KG, PER MIN
     Route: 042

REACTIONS (9)
  - Device related infection [Unknown]
  - Right ventricular failure [Recovering/Resolving]
  - Caesarean section [Unknown]
  - Normal newborn [Unknown]
  - Dyspnoea [Recovering/Resolving]
  - Premature delivery [Recovered/Resolved]
  - Pyrexia [Unknown]
  - Renal impairment [Recovering/Resolving]
  - Pregnancy [Recovered/Resolved]
